FAERS Safety Report 5002433-1 (Version None)
Quarter: 2006Q2

REPORT INFORMATION
  Report Type: 
  Country: None (occurrence: None)
  Receive Date: 20060510
  Receipt Date: 20060407
  Transmission Date: 20061013
  Serious: Yes (Death)
  Sender: FDA-Public Use
  Company Number: 223943

PATIENT
  Age: 74 Year
  Sex: Male

DRUGS (1)
  1. AVASTIN [Suspect]
     Indication: METASTATIC RENAL CELL CARCINOMA
     Dates: end: 20051201

REACTIONS (19)
  - ASTHENIA [None]
  - ATRIAL FIBRILLATION [None]
  - BLOOD ALBUMIN DECREASED [None]
  - DEEP VEIN THROMBOSIS [None]
  - GENERALISED OEDEMA [None]
  - HAEMATOCRIT DECREASED [None]
  - HAEMOGLOBIN DECREASED [None]
  - INFECTION [None]
  - LABORATORY TEST ABNORMAL [None]
  - METASTATIC NEOPLASM [None]
  - NEUTROPHIL PERCENTAGE INCREASED [None]
  - PLATELET COUNT INCREASED [None]
  - POST PROCEDURAL COMPLICATION [None]
  - PROSTATE CANCER [None]
  - RADICULOPATHY [None]
  - RENAL FAILURE [None]
  - RESPIRATORY DISTRESS [None]
  - SPINAL DISORDER [None]
  - WHITE BLOOD CELL COUNT INCREASED [None]
